FAERS Safety Report 8854965 (Version 2)
Quarter: 2012Q4

REPORT INFORMATION
  Report Type: 
  Country: BE (occurrence: BE)
  Receive Date: 20121023
  Receipt Date: 20121031
  Transmission Date: 20130627
  Serious: Yes (Death, Hospitalization)
  Sender: FDA-Public Use
  Company Number: BE-RANBAXY-2012RR-61253

PATIENT
  Age: 61 Year
  Sex: Female

DRUGS (9)
  1. ATORVASTATIN [Suspect]
     Indication: PRODUCT USED FOR UNKNOWN INDICATION
     Dosage: 10 mg, qd
     Route: 065
  2. NAPROXEN [Suspect]
     Indication: ARTHRITIS
     Dosage: 500 mg, tid
     Route: 065
  3. NAPROXEN [Suspect]
     Indication: CHEST PAIN
  4. METFORMIN [Suspect]
     Indication: PRODUCT USED FOR UNKNOWN INDICATION
     Dosage: 500 mg, qd
     Route: 065
  5. TRAMADOL [Suspect]
     Indication: PRODUCT USED FOR UNKNOWN INDICATION
     Dosage: 100 mg, bid as needed
     Route: 065
  6. ALLOPURINOL [Suspect]
     Indication: PRODUCT USED FOR UNKNOWN INDICATION
     Dosage: 300 mg, qd
     Route: 065
  7. RANITIDINE [Suspect]
     Indication: PRODUCT USED FOR UNKNOWN INDICATION
     Dosage: 500 mg, qd
     Route: 065
  8. HYDROCHLOROTHIAZIDE\LISINOPRIL [Suspect]
     Indication: PRODUCT USED FOR UNKNOWN INDICATION
     Dosage: 20/12.5 mg, qd
     Route: 065
  9. QUININE SULFATE [Suspect]
     Indication: PRODUCT USED FOR UNKNOWN INDICATION
     Dosage: 100 mg, qd
     Route: 065

REACTIONS (11)
  - Toxic epidermal necrolysis [Fatal]
  - Rhabdomyolysis [Fatal]
  - Multi-organ failure [Fatal]
  - Diarrhoea [None]
  - Hypotension [None]
  - Dyspnoea [None]
  - Sinus tachycardia [None]
  - Renal failure acute [None]
  - Renal infarct [None]
  - Bradycardia [None]
  - Cardiac arrest [None]
